FAERS Safety Report 4993064-8 (Version None)
Quarter: 2006Q1

REPORT INFORMATION
  Report Type: 
  Country: None (occurrence: None)
  Receive Date: 20060313
  Receipt Date: 20051219
  Transmission Date: 20060701
  Serious: No
  Sender: FDA-Public Use
  Company Number: 2005-BP-21611BP

PATIENT
  Age: 65 Year
  Sex: Female

DRUGS (3)
  1. SPIRIVA [Suspect]
     Indication: ASTHMA
     Dosage: 18 MCG (18 MCG, 1 IN 1 D), IH
     Route: 055
     Dates: start: 20050901
  2. QVAR (BECLOMETASONE DIPROPIONATE) [Concomitant]
  3. ACTONEL [Concomitant]

REACTIONS (3)
  - DRY MOUTH [None]
  - OEDEMA MOUTH [None]
  - ORAL MUCOSAL EXFOLIATION [None]
